FAERS Safety Report 9175358 (Version 1)
Quarter: 2013Q1

REPORT INFORMATION
  Report Type: Report from Study
  Country: US (occurrence: US)
  Receive Date: 20130320
  Receipt Date: 20130320
  Transmission Date: 20140127
  Serious: Yes (Hospitalization, Other)
  Sender: FDA-Public Use
  Company Number: US-ABBOTT-13P-163-1061851-00

PATIENT
  Sex: Female
  Weight: 83.54 kg

DRUGS (11)
  1. HUMIRA [Suspect]
     Indication: RHEUMATOID ARTHRITIS
     Dates: start: 201104, end: 201203
  2. HUMIRA [Suspect]
     Indication: PSORIATIC ARTHROPATHY
     Dates: start: 20130311
  3. MELOXICAM [Concomitant]
     Indication: PSORIATIC ARTHROPATHY
  4. VOLTAREN [Concomitant]
     Indication: RHEUMATOID ARTHRITIS
  5. ACCOLATE [Concomitant]
     Indication: ASTHMA
  6. VASOTEC [Concomitant]
     Indication: HYPERTENSION
  7. METOPROLOL [Concomitant]
     Indication: HEART VALVE INCOMPETENCE
  8. SIMVASTATIN [Concomitant]
     Indication: HYPERLIPIDAEMIA
  9. VITAMIN D [Concomitant]
     Indication: HYPOVITAMINOSIS
  10. FOLIC ACID [Concomitant]
     Indication: VITAMIN SUPPLEMENTATION
  11. BONIVA [Concomitant]
     Indication: OSTEOPOROSIS

REACTIONS (7)
  - Spinal cord herniation [Not Recovered/Not Resolved]
  - Intervertebral disc degeneration [Not Recovered/Not Resolved]
  - Hyperkeratosis [Not Recovered/Not Resolved]
  - Corneal dystrophy [Not Recovered/Not Resolved]
  - Hypoaesthesia [Not Recovered/Not Resolved]
  - Spondylitis [Unknown]
  - Osteoporosis [Not Recovered/Not Resolved]
